FAERS Safety Report 9876101 (Version 2)
Quarter: 2014Q1

REPORT INFORMATION
  Report Type: Other
  Country: US (occurrence: US)
  Receive Date: 20140206
  Receipt Date: 20140206
  Transmission Date: 20141002
  Serious: No
  Sender: FDA-Public Use
  Company Number: US-ACORDA-ACO_35251_2013

PATIENT
  Age: 58 Year
  Sex: Female

DRUGS (5)
  1. AMPYRA [Suspect]
     Indication: MULTIPLE SCLEROSIS
     Dosage: 10 MG, BID
     Route: 048
     Dates: start: 20120808, end: 201303
  2. COPAXONE [Suspect]
     Indication: MULTIPLE SCLEROSIS
     Dosage: 20 MG, QD
     Route: 058
  3. LYRICA [Concomitant]
     Indication: PAIN
     Dosage: 75 UNK, QD
     Route: 048
  4. BACLOFEN [Concomitant]
     Indication: MUSCLE SPASTICITY
     Dosage: 10 UNK, BID
     Route: 048
  5. MIRAPEX [Concomitant]
     Indication: RESTLESS LEGS SYNDROME
     Dosage: 0.25 HS UNK, UNK
     Route: 048

REACTIONS (3)
  - Rash pruritic [Unknown]
  - Injection site reaction [Unknown]
  - Drug ineffective [Unknown]
